FAERS Safety Report 9723077 (Version 2)
Quarter: 2013Q4

REPORT INFORMATION
  Report Type: Spontaneous
  Country: US (occurrence: None)
  Receive Date: 20131126
  Receipt Date: 20131211
  Transmission Date: 20140711
  Serious: Yes (Hospitalization)
  Sender: FDA-Public Use
  Company Number: AUR-APL-2013-09818

PATIENT
  Age: 84 Year
  Sex: Female
  Weight: 88 kg

DRUGS (7)
  1. MELOXICAM [Suspect]
     Indication: BACK PAIN
     Dosage: STOPPED?
  2. TELMISARTAN (TELMISARTAN) [Concomitant]
  3. ATORVASTATIN (ATORVASTATIN) [Concomitant]
  4. LEVOTHYROXINE (LEVOTHYROXINE) [Concomitant]
  5. MONTELUKAST (MONTELUKAST) [Concomitant]
  6. FLUTICASONE W/SALMETEROL (FLUTICASONE W/SALMETEROL) [Concomitant]
  7. ALBUTEROL (SALBUTAMOL) [Concomitant]

REACTIONS (8)
  - Thrombocytopenia [None]
  - Faeces discoloured [None]
  - Contusion [None]
  - Idiosyncratic drug reaction [None]
  - Petechiae [None]
  - Gastrointestinal haemorrhage [None]
  - Ecchymosis [None]
  - Drug hypersensitivity [None]
